FAERS Safety Report 22292254 (Version 1)
Quarter: 2023Q2

REPORT INFORMATION
  Report Type: Spontaneous
  Country: ES (occurrence: ES)
  Receive Date: 20230508
  Receipt Date: 20230508
  Transmission Date: 20230722
  Serious: Yes (Other)
  Sender: FDA-Public Use
  Company Number: ES-Aristo Pharma Iberia S.L.-2023009950

PATIENT
  Age: 7 Year
  Sex: Female

DRUGS (1)
  1. TOPIRAMATE [Suspect]
     Active Substance: TOPIRAMATE
     Indication: Migraine prophylaxis
     Dosage: 25 MILLIGRAM, TWO TIMES A DAY (ASCENDING DOSE UP TO A DOSE OF 25MG EVERY TWELVE HOURS.)
     Route: 065

REACTIONS (5)
  - Hallucination [Recovered/Resolved]
  - Suicidal ideation [Recovered/Resolved]
  - Mood swings [Recovered/Resolved]
  - Negativism [Recovered/Resolved]
  - Off label use [Recovered/Resolved]
